FAERS Safety Report 25597729 (Version 1)
Quarter: 2025Q3

REPORT INFORMATION
  Report Type: Spontaneous
  Country: US (occurrence: US)
  Receive Date: 20250723
  Receipt Date: 20250723
  Transmission Date: 20251021
  Serious: Yes (Other)
  Sender: SANOFI AVENTIS
  Company Number: US-SA-2025SA211768

PATIENT
  Age: 53 Year
  Sex: Female

DRUGS (24)
  1. DUPIXENT [Suspect]
     Active Substance: DUPILUMAB
     Indication: Nasal polyps
     Route: 058
     Dates: start: 20240422
  2. DESVENLAFAXINE [Concomitant]
     Active Substance: DESVENLAFAXINE
  3. ELIQUIS [Concomitant]
     Active Substance: APIXABAN
  4. PULMICORT TURBUHALER [Concomitant]
     Active Substance: BUDESONIDE
  5. PREDNISONE [Concomitant]
     Active Substance: PREDNISONE
  6. CLOBETASOL [Concomitant]
     Active Substance: CLOBETASOL
  7. ROSUVASTATIN [Concomitant]
     Active Substance: ROSUVASTATIN
  8. DIGOXIN [Concomitant]
     Active Substance: DIGOXIN
  9. ESCITALOPRAM [Concomitant]
     Active Substance: ESCITALOPRAM OXALATE
  10. HYDROXYZINE [Concomitant]
     Active Substance: HYDROXYZINE HYDROCHLORIDE
  11. BASAGLAR [Concomitant]
     Active Substance: INSULIN GLARGINE
  12. ATROVENT [Concomitant]
     Active Substance: IPRATROPIUM BROMIDE
  13. LOSARTAN [Concomitant]
     Active Substance: LOSARTAN
  14. CEFUROXIME [Concomitant]
     Active Substance: CEFUROXIME
  15. EPINEPHRINE [Concomitant]
     Active Substance: EPINEPHRINE
  16. FARXIGA [Concomitant]
     Active Substance: DAPAGLIFLOZIN PROPANEDIOL
  17. BACLOFEN [Concomitant]
     Active Substance: BACLOFEN
  18. DIFLUCAN [Concomitant]
     Active Substance: FLUCONAZOLE
  19. METOPROLOL [Concomitant]
     Active Substance: METOPROLOL
  20. AZELASTINE [Concomitant]
     Active Substance: AZELASTINE
  21. DIGOXIN [Concomitant]
     Active Substance: DIGOXIN
  22. FLUOXETINE [Concomitant]
     Active Substance: FLUOXETINE HYDROCHLORIDE
  23. HYDROCORTISONE [Concomitant]
     Active Substance: HYDROCORTISONE
  24. TRIAMCINOLONE [Concomitant]
     Active Substance: TRIAMCINOLONE

REACTIONS (2)
  - Cerebrovascular accident [Unknown]
  - Memory impairment [Unknown]

NARRATIVE: CASE EVENT DATE: 20250721
